FAERS Safety Report 22308854 (Version 1)
Quarter: 2023Q2

REPORT INFORMATION
  Report Type: Spontaneous
  Country: US (occurrence: None)
  Receive Date: 20230510
  Receipt Date: 20230510
  Transmission Date: 20230722
  Serious: No
  Sender: FDA-Public Use
  Company Number: None

PATIENT
  Age: 61 Year
  Sex: Male
  Weight: 88.99 kg

DRUGS (4)
  1. CAPECITABINE [Suspect]
     Active Substance: CAPECITABINE
     Indication: Oesophageal carcinoma
     Dosage: 1500MG TWICE A DAY ORAL
     Dates: end: 20230501
  2. CAPECITABINE [Suspect]
     Active Substance: CAPECITABINE
     Dosage: FREQUENCY : TWICE A DAY;?
     Route: 048
     Dates: end: 20230501
  3. APIXABAN [Concomitant]
  4. NITROGLYCERIN [Concomitant]

REACTIONS (2)
  - Oesophageal carcinoma [None]
  - Malignant neoplasm progression [None]
